FAERS Safety Report 21565788 (Version 1)
Quarter: 2022Q4

REPORT INFORMATION
  Report Type: Spontaneous
  Country: JP (occurrence: JP)
  Receive Date: 20221108
  Receipt Date: 20221108
  Transmission Date: 20230113
  Serious: Yes (Death)
  Sender: FDA-Public Use
  Company Number: JP-CHEPLA-2022009938

PATIENT
  Sex: Female

DRUGS (6)
  1. GANCICLOVIR [Suspect]
     Active Substance: GANCICLOVIR
     Indication: Cytomegalovirus infection
     Dosage: IV DRIP
     Dates: start: 20191202
  2. GANCICLOVIR [Suspect]
     Active Substance: GANCICLOVIR
     Indication: Colitis ulcerative
     Dosage: IV DRIP
     Dates: start: 20191202
  3. PREDNISOLONE SODIUM PHOSPHATE [Concomitant]
     Active Substance: PREDNISOLONE SODIUM PHOSPHATE
     Dates: start: 20191129
  4. LEVOFLOXACIN HEMIHYDRATE [Concomitant]
     Active Substance: LEVOFLOXACIN
  5. PREDNISOLONE [Concomitant]
     Active Substance: PREDNISOLONE
  6. VEDOLIZUMAB [Concomitant]
     Active Substance: VEDOLIZUMAB

REACTIONS (5)
  - Pulmonary oedema [Fatal]
  - Intestinal ischaemia [Fatal]
  - Ischaemic hepatitis [Fatal]
  - Haematochezia [Fatal]
  - Product use in unapproved indication [Recovered/Resolved]

NARRATIVE: CASE EVENT DATE: 20191202
